FAERS Safety Report 7671549-3 (Version None)
Quarter: 2011Q3

REPORT INFORMATION
  Report Type: 
  Country: None (occurrence: None)
  Receive Date: 20110809
  Receipt Date: 20110809
  Transmission Date: 20111222
  Serious: No
  Sender: FDA-Public Use
  Company Number: None

PATIENT
  Age: 50 Year
  Sex: Male
  Weight: 63.502 kg

DRUGS (1)
  1. SIMVASTATIN [Suspect]
     Indication: BLOOD CHOLESTEROL INCREASED
     Dosage: 1 TABLET BY MOUTH AT BEDTIME
     Dates: start: 20090901, end: 20110714

REACTIONS (4)
  - HYPOAESTHESIA [None]
  - ECONOMIC PROBLEM [None]
  - MUSCLE INJURY [None]
  - MUSCULOSKELETAL PAIN [None]
